FAERS Safety Report 15419942 (Version 4)
Quarter: 2019Q2

REPORT INFORMATION
  Report Type: Spontaneous
  Country: US (occurrence: US)
  Receive Date: 20180924
  Receipt Date: 20190621
  Transmission Date: 20190711
  Serious: No
  Sender: FDA-Public Use
  Company Number: US-ADAMAS PHARMA, LLC-2018ADA01831

PATIENT
  Age: 77 Year
  Sex: Female
  Weight: 78.91 kg

DRUGS (27)
  1. LORAZEPAM. [Concomitant]
     Active Substance: LORAZEPAM
     Dosage: 0.5 MG, AS NEEDED AT NIGHT
  2. GOCOVRI [Suspect]
     Active Substance: AMANTADINE
     Dosage: 137 MG, 2X/DAY
     Route: 048
     Dates: start: 2019
  3. POTASSIUM [Concomitant]
     Active Substance: POTASSIUM
     Dosage: 1 TABLETS, 1X/DAY
  4. GOCOVRI [Suspect]
     Active Substance: AMANTADINE
     Indication: DYSKINESIA
     Dosage: 137 MG, 1X/DAY AT BEDTIME
     Route: 048
     Dates: start: 201807, end: 201808
  5. CARBIDOPA-LEVODOPA [Suspect]
     Active Substance: CARBIDOPA\LEVODOPA
     Dosage: UNK
  6. LOSARTAN. [Concomitant]
     Active Substance: LOSARTAN
     Dosage: 50 MG, 2X/DAY
  7. GOCOVRI [Suspect]
     Active Substance: AMANTADINE
     Dosage: 274 MG, 1X/DAY AT BEDTIME
     Route: 048
     Dates: start: 201808, end: 20180805
  8. GOCOVRI [Suspect]
     Active Substance: AMANTADINE
     Dosage: 137 MG, 2X/DAY
     Route: 048
     Dates: start: 2018, end: 2018
  9. HYDROCHLOROTHIAZIDE. [Concomitant]
     Active Substance: HYDROCHLOROTHIAZIDE
     Dosage: 12.5 MG, 1X/DAY
  10. ALPRAZOLAM. [Concomitant]
     Active Substance: ALPRAZOLAM
     Dosage: 0.5 UNK, 1X/DAY
  11. CITALOPRAM [Concomitant]
     Active Substance: CITALOPRAM HYDROBROMIDE
     Dosage: 40 MG, 1X/DAY
  12. TIZANADINE [Concomitant]
     Active Substance: TIZANIDINE
     Dosage: UNK, AS NEEDED
     Dates: start: 2018
  13. GENTLE TEARS [Concomitant]
  14. DOXYCYCL HYC [Concomitant]
     Dosage: 1 DOSAGE UNITS, 1X/DAY AT NIGHT
  15. CARBIDOPA/LEVODOPA ER [Concomitant]
     Active Substance: CARBIDOPA\LEVODOPA
     Dosage: UNK, 1X/DAY AT BEDTIME
  16. MAGNESIUM [Concomitant]
     Active Substance: MAGNESIUM
     Dosage: UNK, 1X/DAY
  17. CARBIDOPA-LEVODOPA [Suspect]
     Active Substance: CARBIDOPA\LEVODOPA
     Dosage: UNK, UP TO 6X/DAY
  18. TOPROL XL [Concomitant]
     Active Substance: METOPROLOL SUCCINATE
     Dosage: 50 MG, 1X/DAY
  19. COQ10 [Concomitant]
     Active Substance: UBIDECARENONE
     Dosage: UNK, 1X/DAY
  20. VITAMIN D2 [Concomitant]
     Active Substance: ERGOCALCIFEROL
     Dosage: UNK, 2X/WEEK
  21. GOCOVRI [Suspect]
     Active Substance: AMANTADINE
     Dosage: 274 MG, 1X/DAY AT BEDTIME
     Route: 048
     Dates: start: 2018, end: 20190202
  22. GOCOVRI [Suspect]
     Active Substance: AMANTADINE
     Dosage: 137 MG, 1X/DAY AT BEDTIME
     Dates: start: 20190203, end: 20190203
  23. UNSPECIFIED PROBIOTIC [Concomitant]
     Dosage: UNK, 1X/DAY
  24. GENTEAL MODERATE TO SEVERE GEL DROPS [Concomitant]
     Active Substance: CARBOXYMETHYLCELLULOSE SODIUM\HYPROMELLOSES
     Dosage: UNK, AS NEEDED
  25. GOCOVRI [Suspect]
     Active Substance: AMANTADINE
     Dosage: 137 MG, 2X/DAY
     Route: 048
     Dates: start: 20180806, end: 20180806
  26. GOCOVRI [Suspect]
     Active Substance: AMANTADINE
     Dosage: 137 MG, 1X/DAY AT BEDTIME
     Dates: start: 20180807, end: 2018
  27. OCUVITE [Concomitant]
     Active Substance: VITAMINS
     Dosage: UNK, 1X/DAY

REACTIONS (17)
  - Panic attack [Unknown]
  - Dry mouth [Unknown]
  - Dizziness [Recovering/Resolving]
  - Neck pain [Recovered/Resolved]
  - Balance disorder [Recovering/Resolving]
  - Tremor [Recovered/Resolved]
  - Orthostatic hypotension [Unknown]
  - Hyperhidrosis [Unknown]
  - Dyskinesia [Recovered/Resolved]
  - Product dose omission [Recovered/Resolved]
  - Dystonia [Unknown]
  - Headache [Recovered/Resolved]
  - Peripheral swelling [Not Recovered/Not Resolved]
  - Anxiety [Recovered/Resolved]
  - Tachycardia [Recovered/Resolved]
  - Trismus [Recovered/Resolved]
  - Intentional underdose [Recovered/Resolved]

NARRATIVE: CASE EVENT DATE: 2018
